FAERS Safety Report 4400805-7 (Version None)
Quarter: 2004Q3

REPORT INFORMATION
  Report Type: 
  Country: None (occurrence: None)
  Receive Date: 20040907
  Receipt Date: 20030616
  Transmission Date: 20050211
  Serious: No
  Sender: FDA-Public Use
  Company Number: US-BRISTOL-MYERS SQUIBB COMPANY-12302667

PATIENT
  Age: 80 Year
  Sex: Female
  Weight: 77 kg

DRUGS (1)
  1. COUMADIN [Suspect]
     Indication: ATRIAL FIBRILLATION
     Dosage: DOSAGE: 1/2 OF A 5MG TAB FIVE DAYS/WEEK AND 5MG TWO DAYS/WEEK.
     Route: 048
     Dates: start: 20030322

REACTIONS (5)
  - ARTHRALGIA [None]
  - ASTHENIA [None]
  - FALL [None]
  - HEAD INJURY [None]
  - MYALGIA [None]
